FAERS Safety Report 9717093 (Version 2)
Quarter: 2013Q4

REPORT INFORMATION
  Report Type: Spontaneous
  Country: US (occurrence: US)
  Receive Date: 20131127
  Receipt Date: 20131127
  Transmission Date: 20140711
  Serious: No
  Sender: FDA-Public Use
  Company Number: US-GILEAD-2009-0020152

PATIENT
  Sex: Male
  Weight: 74.84 kg

DRUGS (24)
  1. LETAIRIS [Suspect]
     Indication: PULMONARY ARTERIAL HYPERTENSION
     Route: 048
     Dates: start: 20081217
  2. OXYGEN [Concomitant]
  3. REVATIO [Concomitant]
  4. COUMADIN [Concomitant]
  5. LASIX [Concomitant]
  6. ATENOLOL [Concomitant]
  7. SPIRONOLACTONE [Concomitant]
  8. ATACAND [Concomitant]
  9. OCUVITE [Concomitant]
  10. SYNTHROID [Concomitant]
  11. PROSCAR [Concomitant]
  12. HYTRIN [Concomitant]
  13. NASONEX [Concomitant]
  14. PEPCID [Concomitant]
  15. NEXIUM [Concomitant]
  16. BENADRYL [Concomitant]
  17. FOLGARD [Concomitant]
  18. IRON [Concomitant]
  19. MAGNESIUM GLUCONATE [Concomitant]
  20. VIACTIV [Concomitant]
  21. VITAMIN D [Concomitant]
  22. VITAMIN B-50 [Concomitant]
  23. MULTIVITAMIN [Concomitant]
  24. SALINE NASAL SPRAY [Concomitant]

REACTIONS (2)
  - Oedema peripheral [Unknown]
  - Weight increased [Unknown]
